APPROVED DRUG PRODUCT: DEXTROSE 30% IN PLASTIC CONTAINER
Active Ingredient: DEXTROSE
Strength: 30GM/100ML
Dosage Form/Route: INJECTABLE;INJECTION
Application: N019345 | Product #001
Applicant: OTSUKA ICU MEDICAL LLC
Approved: Jan 26, 1985 | RLD: Yes | RS: Yes | Type: RX